FAERS Safety Report 16867986 (Version 2)
Quarter: 2019Q4

REPORT INFORMATION
  Report Type: Report from Study
  Country: None (occurrence: JP)
  Receive Date: 20190930
  Receipt Date: 20191007
  Transmission Date: 20200122
  Serious: Yes (Death)
  Sender: FDA-Public Use
  Company Number: JP-ABBVIE-19P-087-2945044-00

PATIENT
  Age: 60 Year
  Sex: Male

DRUGS (1)
  1. LEUPLIN [Suspect]
     Active Substance: LEUPROLIDE ACETATE
     Indication: BULBOSPINAL MUSCULAR ATROPHY CONGENITAL
     Dosage: 11.25 MILLIGRAM, Q3MONTHS
     Route: 058
     Dates: start: 20171217

REACTIONS (4)
  - Decreased appetite [Unknown]
  - Condition aggravated [Fatal]
  - Bulbospinal muscular atrophy congenital [Fatal]
  - Brugada syndrome [Fatal]

NARRATIVE: CASE EVENT DATE: 201906
